FAERS Safety Report 19720512 (Version 2)
Quarter: 2021Q3

REPORT INFORMATION
  Report Type: Spontaneous
  Country: US (occurrence: US)
  Receive Date: 20210819
  Receipt Date: 20210824
  Transmission Date: 20211014
  Serious: Yes (Other)
  Sender: FDA-Public Use
  Company Number: US-TEVA-2021-US-1941467

PATIENT
  Age: 73 Year
  Sex: Female

DRUGS (1)
  1. EPINEPHRINE. [Suspect]
     Active Substance: EPINEPHRINE
     Indication: HYPERSENSITIVITY
     Dosage: DOSE: 0.3/0.3
     Route: 065

REACTIONS (6)
  - Device difficult to use [Unknown]
  - Device defective [Unknown]
  - Device malfunction [Unknown]
  - Device deployment issue [Unknown]
  - Depressed mood [Unknown]
  - Injection site bruising [Unknown]

NARRATIVE: CASE EVENT DATE: 202108
